FAERS Safety Report 11677803 (Version 2)
Quarter: 2015Q4

REPORT INFORMATION
  Report Type: Spontaneous
  Country: PT (occurrence: PT)
  Receive Date: 20151028
  Receipt Date: 20151105
  Transmission Date: 20160304
  Serious: Yes (Other)
  Sender: FDA-Public Use
  Company Number: PT-WATSON-2015-12220

PATIENT
  Age: 63 Year
  Sex: Male

DRUGS (5)
  1. PREDNISOLONE ACETATE (WATSON LABORATORIES) [Suspect]
     Active Substance: PREDNISOLONE ACETATE
     Indication: COLITIS ULCERATIVE
     Dosage: 60 MG, DAILY
     Route: 042
  2. PREDNISOLON ACTAVIS [Suspect]
     Active Substance: PREDNISOLONE
     Indication: COLITIS ULCERATIVE
     Dosage: 60 MG, DAILY, IN A TAPERING SCHEDULE
     Route: 048
  3. INSULIN [Concomitant]
     Active Substance: INSULIN NOS
     Indication: TYPE 2 DIABETES MELLITUS
     Dosage: UNKNOWN
     Route: 065
  4. MESALAZINE [Concomitant]
     Active Substance: MESALAMINE
     Indication: COLITIS ULCERATIVE
     Dosage: 4.5 MG, DAILY
     Route: 048
  5. MESALAZINE [Concomitant]
     Active Substance: MESALAMINE
     Dosage: UNKNOWN
     Route: 061

REACTIONS (4)
  - Anaemia [None]
  - Kaposi^s sarcoma [Recovered/Resolved]
  - Therapy cessation [None]
  - Dehydration [None]
